FAERS Safety Report 17793186 (Version 1)
Quarter: 2020Q2

REPORT INFORMATION
  Report Type: Spontaneous
  Country: FR (occurrence: FR)
  Receive Date: 20200515
  Receipt Date: 20200515
  Transmission Date: 20200714
  Serious: Yes (Other)
  Sender: FDA-Public Use
  Company Number: FR-ACTELION-A-CH2020-205137

PATIENT
  Age: 59 Year
  Sex: Female
  Weight: 57 kg

DRUGS (7)
  1. BOSENTAN ARROW [Suspect]
     Active Substance: BOSENTAN
     Indication: SCLERODERMA
     Dosage: 62.5 MG, BID
     Route: 048
     Dates: start: 20200218, end: 20200331
  2. THYROZOL [Concomitant]
     Active Substance: METHIMAZOLE
     Dosage: 5 MG, BID
     Route: 065
     Dates: end: 202002
  3. TRACLEER [Suspect]
     Active Substance: BOSENTAN
     Indication: SCLERODERMA
     Route: 048
  4. DEDROGYL [Concomitant]
     Active Substance: CALCIFEDIOL
     Indication: PRODUCT USED FOR UNKNOWN INDICATION
     Dosage: 5 GTT, QD
     Route: 065
  5. INEXIUM [ESOMEPRAZOLE MAGNESIUM] [Concomitant]
     Active Substance: ESOMEPRAZOLE MAGNESIUM
     Indication: GASTRITIS HAEMORRHAGIC
     Dosage: 1 DF, QD
     Route: 065
     Dates: start: 201906
  6. THYROZOL [Concomitant]
     Active Substance: METHIMAZOLE
     Dosage: 5 MG, BID
     Route: 065
     Dates: start: 20200331
  7. LOXEN L P [Concomitant]
     Active Substance: NICARDIPINE HYDROCHLORIDE
     Indication: PRODUCT USED FOR UNKNOWN INDICATION
     Dosage: UNK
     Route: 065

REACTIONS (10)
  - Migraine [Not Recovered/Not Resolved]
  - Intentional dose omission [Unknown]
  - Feeling of body temperature change [Not Recovered/Not Resolved]
  - Biopsy [Unknown]
  - Fatigue [Not Recovered/Not Resolved]
  - Cold sweat [Unknown]
  - Hepatic pain [Not Recovered/Not Resolved]
  - Yellow skin [Not Recovered/Not Resolved]
  - Anaemia [Not Recovered/Not Resolved]
  - Nausea [Not Recovered/Not Resolved]

NARRATIVE: CASE EVENT DATE: 202002
